FAERS Safety Report 20631209 (Version 1)
Quarter: 2022Q1

REPORT INFORMATION
  Report Type: Spontaneous
  Country: JP (occurrence: JP)
  Receive Date: 20220324
  Receipt Date: 20220324
  Transmission Date: 20220424
  Serious: Yes (Death)
  Sender: FDA-Public Use
  Company Number: JP-JNJFOC-20200211203

PATIENT
  Age: 89 Year
  Sex: Male

DRUGS (3)
  1. REMINYL [Suspect]
     Active Substance: GALANTAMINE
     Indication: Dementia Alzheimer^s type
     Route: 048
     Dates: start: 20200118, end: 20200121
  2. DOMPERIDONE [Concomitant]
     Active Substance: DOMPERIDONE
     Indication: Nausea
     Dosage: UNKNOWN
     Route: 065
  3. METHYLCOBALAMIN [Concomitant]
     Active Substance: METHYLCOBALAMIN
     Indication: Neuropathy peripheral
     Dosage: UNKNOWN
     Route: 065

REACTIONS (2)
  - Myocardial ischaemia [Fatal]
  - Nausea [Unknown]

NARRATIVE: CASE EVENT DATE: 20200101
